FAERS Safety Report 21681553 (Version 1)
Quarter: 2022Q4

REPORT INFORMATION
  Report Type: Spontaneous
  Country: ET (occurrence: ET)
  Receive Date: 20221205
  Receipt Date: 20221205
  Transmission Date: 20230113
  Serious: Yes (Death, Life-Threatening, Hospitalization, Other)
  Sender: FDA-Public Use
  Company Number: ET-STERISCIENCE B.V.-2022-ST-000105

PATIENT
  Age: 39 Year
  Sex: Female

DRUGS (19)
  1. VANCOMYCIN [Suspect]
     Active Substance: VANCOMYCIN
     Indication: Pneumonia bacterial
     Dosage: UNK
     Route: 065
     Dates: start: 2021, end: 2021
  2. PREDNISOLONE [Suspect]
     Active Substance: PREDNISOLONE
     Indication: Angle closure glaucoma
     Dosage: 20 MILLIGRAM/DAY
     Route: 048
     Dates: start: 2021
  3. DEXAMETHASONE [Suspect]
     Active Substance: DEXAMETHASONE
     Indication: COVID-19
     Dosage: 6 MILLIGRAM/DAY
     Route: 042
     Dates: start: 2021, end: 2021
  4. AZITHROMYCIN [Suspect]
     Active Substance: AZITHROMYCIN
     Indication: Pneumonia bacterial
     Dosage: UNK
     Route: 065
     Dates: start: 2021, end: 2021
  5. CEFTRIAXONE\SULBACTAM [Suspect]
     Active Substance: CEFTRIAXONE\SULBACTAM
     Indication: Pneumonia bacterial
     Dosage: 1.5 MILLIGRAM, BID
     Route: 042
     Dates: start: 2021, end: 2021
  6. HEPARIN SODIUM [Suspect]
     Active Substance: HEPARIN SODIUM
     Indication: COVID-19
     Dosage: 17500 [UNIT NOT STATED], BID
     Route: 058
     Dates: start: 2021, end: 2021
  7. VITAMIN C [Suspect]
     Active Substance: ASCORBIC ACID
     Indication: COVID-19
     Dosage: 200 MILLIGRAM/DAY
     Route: 048
     Dates: start: 2021, end: 2021
  8. ZINC [Suspect]
     Active Substance: ZINC
     Indication: COVID-19
     Dosage: 20 MILLIGRAM/DAY
     Route: 048
     Dates: start: 2021, end: 2021
  9. AMPHOTERICIN B [Suspect]
     Active Substance: AMPHOTERICIN B
     Indication: Rhinocerebral mucormycosis
     Dosage: 5 MILLIGRAM/KILOGRAM/DAY
     Route: 042
     Dates: start: 2021, end: 2021
  10. HYDROCORTISONE [Suspect]
     Active Substance: HYDROCORTISONE
     Indication: Rhinocerebral mucormycosis
     Dosage: UNK
     Route: 065
     Dates: start: 2021, end: 2021
  11. TIMOLOL [Concomitant]
     Active Substance: TIMOLOL
     Indication: Angle closure glaucoma
     Dosage: UNK
     Route: 065
     Dates: start: 2021, end: 2021
  12. TROPICAMIDE [Concomitant]
     Active Substance: TROPICAMIDE
     Indication: Angle closure glaucoma
     Dosage: EYE DROP- THREE TIMES A DAY
     Route: 065
     Dates: start: 2021, end: 2021
  13. ACETAZOLAMIDE [Concomitant]
     Active Substance: ACETAZOLAMIDE
     Indication: Angle closure glaucoma
     Dosage: 250 MILLIGRAM, BID
     Route: 048
     Dates: start: 2021, end: 2021
  14. VALPROATE SODIUM [Concomitant]
     Active Substance: VALPROATE SODIUM
     Indication: Cerebral palsy
     Dosage: 200 MILLIGRAM, QD
     Route: 048
  15. INSULIN HUMAN [Concomitant]
     Active Substance: INSULIN HUMAN
     Indication: Type 2 diabetes mellitus
     Dosage: 16/8
     Route: 058
     Dates: start: 2021, end: 2021
  16. INSULIN HUMAN [Concomitant]
     Active Substance: INSULIN HUMAN
     Dosage: 28/14
     Route: 058
     Dates: start: 2021, end: 2021
  17. INSULIN NOS [Concomitant]
     Active Substance: INSULIN NOS
     Indication: Type 2 diabetes mellitus
     Dosage: UNK
     Route: 065
     Dates: start: 2021, end: 2021
  18. MEROPENEM [Concomitant]
     Active Substance: MEROPENEM
     Indication: Antibiotic therapy
     Dosage: 1 GRAM THREE TIMES DAILY
     Route: 042
     Dates: start: 2021, end: 2021
  19. MEROPENEM [Concomitant]
     Active Substance: MEROPENEM
     Dosage: THREE TIMES DAILY
     Dates: start: 2021, end: 2021

REACTIONS (5)
  - Septic shock [Fatal]
  - Multiple organ dysfunction syndrome [Fatal]
  - Drug ineffective [Fatal]
  - Rhinocerebral mucormycosis [None]
  - Lethargy [Unknown]

NARRATIVE: CASE EVENT DATE: 20210101
